FAERS Safety Report 4330178-X (Version None)
Quarter: 2004Q1

REPORT INFORMATION
  Report Type: 
  Country: None (occurrence: None)
  Receive Date: 20040329
  Receipt Date: 20040316
  Transmission Date: 20041129
  Serious: No
  Sender: FDA-Public Use
  Company Number: 2004PK00517

PATIENT
  Age: 48 Year
  Sex: Female
  Weight: 80 kg

DRUGS (2)
  1. SEROQUEL [Suspect]
     Dosage: 4000 MG ONCE PO
     Route: 048
     Dates: start: 20040305
  2. TEGRETOL [Suspect]
     Dosage: 600 MG ONCE PO
     Route: 048
     Dates: start: 20040305

REACTIONS (5)
  - ALANINE AMINOTRANSFERASE INCREASED [None]
  - FATIGUE [None]
  - GAMMA-GLUTAMYLTRANSFERASE INCREASED [None]
  - OVERDOSE [None]
  - SUICIDE ATTEMPT [None]
